FAERS Safety Report 6192329-4 (Version None)
Quarter: 2009Q2

REPORT INFORMATION
  Report Type: 
  Country: None (occurrence: None)
  Receive Date: 20090516
  Receipt Date: 20090506
  Transmission Date: 20091009
  Serious: Yes (Other)
  Sender: FDA-Public Use
  Company Number: IL-JNJFOC-20090501378

PATIENT
  Age: 2 Year
  Sex: Male

DRUGS (3)
  1. REMICADE [Suspect]
     Dosage: ^3 CYCLE^
     Route: 042
  2. REMICADE [Suspect]
     Route: 042
  3. REMICADE [Suspect]
     Indication: CROHN'S DISEASE
     Route: 042

REACTIONS (2)
  - ANAEMIA [None]
  - THROMBOCYTOPENIA [None]
